FAERS Safety Report 5883082-X (Version None)
Quarter: 2008Q3

REPORT INFORMATION
  Report Type: 
  Country: None (occurrence: None)
  Receive Date: 20080913
  Receipt Date: 20080827
  Transmission Date: 20090109
  Serious: No
  Sender: FDA-Public Use
  Company Number: US-ABBOTT-08P-163-0472870-00

PATIENT
  Sex: Female
  Weight: 71.732 kg

DRUGS (5)
  1. HUMIRA [Suspect]
     Indication: CROHN'S DISEASE
     Dosage: 160 MG, 4 PENS
     Route: 050
     Dates: start: 20080825, end: 20080825
  2. HUMIRA [Suspect]
     Route: 050
  3. OBETROL [Concomitant]
     Indication: ATTENTION DEFICIT/HYPERACTIVITY DISORDER
     Dosage: 50 MG DAILY
     Route: 048
     Dates: start: 20070101
  4. ESOMEPRAZOLE MAGNESIUM [Concomitant]
     Indication: GASTROOESOPHAGEAL REFLUX PROPHYLAXIS
     Dosage: 40 MG DAILY
     Route: 048
     Dates: start: 20060101
  5. PAROXETINE HCL [Concomitant]
     Indication: SLEEP DISORDER
     Dosage: 20 MG AT BED TIME
     Route: 048
     Dates: start: 20070101

REACTIONS (1)
  - PROCEDURAL COMPLICATION [None]
